FAERS Safety Report 21511643 (Version 2)
Quarter: 2022Q4

REPORT INFORMATION
  Report Type: Spontaneous
  Country: CN (occurrence: None)
  Receive Date: 20221027
  Receipt Date: 20221108
  Transmission Date: 20230113
  Serious: Yes (Other)
  Sender: FDA-Public Use
  Company Number: 2022A333100

PATIENT
  Age: 3287 Day
  Sex: Female
  Weight: 37 kg

DRUGS (1)
  1. BUDESONIDE [Suspect]
     Active Substance: BUDESONIDE
     Indication: Pneumonia
     Route: 055
     Dates: start: 20220910, end: 20220910

REACTIONS (4)
  - Suffocation feeling [Recovering/Resolving]
  - Dyspnoea [Recovering/Resolving]
  - Cyanosis [Unknown]
  - Hypersensitivity [Recovering/Resolving]

NARRATIVE: CASE EVENT DATE: 20220910
